FAERS Safety Report 24571275 (Version 3)
Quarter: 2025Q4

REPORT INFORMATION
  Report Type: Report from Study
  Country: CA (occurrence: CA)
  Receive Date: 20241101
  Receipt Date: 20251017
  Transmission Date: 20260117
  Serious: Yes (Hospitalization, Other)
  Sender: CSL BEHRING
  Company Number: US-BEH-2024182210

PATIENT
  Age: 2 Year
  Sex: Female

DRUGS (9)
  1. HIZENTRA [Suspect]
     Active Substance: HUMAN IMMUNOGLOBULIN G
     Indication: Primary immunodeficiency syndrome
     Dosage: 2 G, QOW
     Route: 065
     Dates: start: 20241008
  2. HIZENTRA [Suspect]
     Active Substance: HUMAN IMMUNOGLOBULIN G
     Dosage: 2 G, QOW
     Route: 065
     Dates: start: 20241008
  3. HIZENTRA [Suspect]
     Active Substance: HUMAN IMMUNOGLOBULIN G
     Dosage: 2 G, QOW
     Route: 058
     Dates: start: 20241008
  4. TRIHEXYPHENIDYL [Concomitant]
     Active Substance: TRIHEXYPHENIDYL
     Indication: Product used for unknown indication
     Dosage: UNK, PRN
     Route: 065
  5. DIAZEPAM [Concomitant]
     Active Substance: DIAZEPAM
     Dosage: UNK, PRN
  6. CLONIDINE [Concomitant]
     Active Substance: CLONIDINE
     Dosage: UNK, PRN
  7. EMLA [Concomitant]
     Active Substance: LIDOCAINE\PRILOCAINE
  8. SELEGILINE [Concomitant]
     Active Substance: SELEGILINE
     Indication: Product used for unknown indication
     Dosage: UNK, PRN
     Route: 065
  9. LORAZEPAM [Concomitant]
     Active Substance: LORAZEPAM
     Indication: Product used for unknown indication
     Route: 065

REACTIONS (18)
  - Dystonia [Unknown]
  - Pyrexia [Unknown]
  - Nasal congestion [Unknown]
  - Pyrexia [Unknown]
  - Dyspnoea [Unknown]
  - Immobile [Unknown]
  - Crying [Unknown]
  - Increased viscosity of upper respiratory secretion [Unknown]
  - Pyrexia [Unknown]
  - Heart rate increased [Unknown]
  - Vomiting [Unknown]
  - Nasal congestion [Unknown]
  - Crying [Unknown]
  - Secretion discharge [Unknown]
  - Discomfort [Unknown]
  - Crying [Unknown]
  - Body temperature increased [Unknown]
  - Product dose omission in error [Unknown]

NARRATIVE: CASE EVENT DATE: 20241008
